FAERS Safety Report 9436835 (Version 2)
Quarter: 2013Q3

REPORT INFORMATION
  Report Type: Spontaneous
  Country: US (occurrence: US)
  Receive Date: 20130802
  Receipt Date: 20130819
  Transmission Date: 20140515
  Serious: Yes (Hospitalization)
  Sender: FDA-Public Use
  Company Number: US-PFIZER INC-2013198516

PATIENT
  Age: 82 Year
  Sex: Female

DRUGS (13)
  1. BOSULIF [Suspect]
     Indication: CHRONIC MYELOID LEUKAEMIA
     Dosage: 500 MG, 1X/DAY
     Route: 048
     Dates: start: 20130620
  2. BOSULIF [Suspect]
     Indication: CHRONIC MYELOID LEUKAEMIA
  3. HYDREA [Concomitant]
     Dosage: UNK, DAILY
  4. LISINOPRIL [Concomitant]
     Dosage: UNK, DAILY
  5. ATENOLOL [Concomitant]
     Dosage: UNK, DAILY
  6. LASIX [Concomitant]
     Dosage: UNK
  7. ALLOPURINOL [Concomitant]
     Dosage: UNK
  8. ALPRAZOLAM [Concomitant]
     Dosage: UNK
  9. OMEPRAZOLE [Concomitant]
     Dosage: UNK
  10. AMLODIPINE BESILATE [Concomitant]
     Dosage: UNK
  11. POTASSIUM CHLORIDE [Concomitant]
     Dosage: UNK
  12. SPRYCEL [Concomitant]
     Dosage: UNK
  13. DIGOXIN [Concomitant]
     Dosage: UNK

REACTIONS (1)
  - Diarrhoea [Recovering/Resolving]
